FAERS Safety Report 8077637-4 (Version None)
Quarter: 2012Q1

REPORT INFORMATION
  Report Type: 
  Country: None (occurrence: None)
  Receive Date: 20120127
  Receipt Date: 20120125
  Transmission Date: 20120608
  Serious: Yes (Death, Hospitalization, Other)
  Sender: FDA-Public Use
  Company Number: DE-PFIZER INC-2011305081

PATIENT
  Age: 82 Year
  Sex: Female

DRUGS (8)
  1. TORSEMIDE [Concomitant]
     Dosage: 5 MG, 1X/DAY
     Route: 048
  2. PANTOPRAZOLE [Concomitant]
     Dosage: 40 MG, 1X/DAY
     Route: 048
  3. NORVASC [Suspect]
     Dosage: 5 MG, 1X/DAY
  4. NORVASC [Suspect]
     Dosage: 5MG X 50 TABLETS
  5. METHOTREXATE [Concomitant]
     Dosage: 5 MG, WEEKLY
     Route: 048
  6. FOSAMAX [Concomitant]
     Dosage: 70 MG, WEEKLY
     Route: 048
  7. IBUPROFEN [Concomitant]
     Dosage: 400 MG, AS NEEDED
     Route: 048
  8. VIGANTOLETTEN ^BAYER^ [Concomitant]
     Dosage: 1000 IU, 1X/DAY

REACTIONS (8)
  - TACHYARRHYTHMIA [None]
  - CLOSTRIDIUM DIFFICILE COLITIS [None]
  - PNEUMONIA [None]
  - CANDIDIASIS [None]
  - SUICIDE ATTEMPT [None]
  - RENAL FAILURE [None]
  - INTENTIONAL OVERDOSE [None]
  - HYPOTENSION [None]
